FAERS Safety Report 4750219-5 (Version None)
Quarter: 2005Q3

REPORT INFORMATION
  Report Type: 
  Country: None (occurrence: None)
  Receive Date: 20050818
  Receipt Date: 20050803
  Transmission Date: 20060218
  Serious: Yes (Hospitalization)
  Sender: FDA-Public Use
  Company Number: RENA-11433

PATIENT
  Age: 73 Year
  Sex: Male

DRUGS (3)
  1. PHOSBLOCK - 250 MG TABLET [Suspect]
     Indication: HYPERPHOSPHATAEMIA
     Dosage: 1 G DAILY PO
     Route: 048
     Dates: start: 20050316, end: 20050323
  2. PHOSBLOCK - 250 MG TABLET [Suspect]
     Indication: HYPERPHOSPHATAEMIA
     Dosage: 0.5 G DAILY PO
     Route: 048
     Dates: start: 20050309, end: 20050315
  3. CALCIUM CARBONATE [Concomitant]

REACTIONS (4)
  - ABDOMINAL PAIN [None]
  - CONSTIPATION [None]
  - ILEUS [None]
  - PYREXIA [None]
